FAERS Safety Report 8361273-6 (Version None)
Quarter: 2012Q2

REPORT INFORMATION
  Report Type: 
  Country: None (occurrence: None)
  Receive Date: 20120515
  Receipt Date: 20120510
  Transmission Date: 20120825
  Serious: Yes (Hospitalization)
  Sender: FDA-Public Use
  Company Number: JP-MERCK-1006USA00723

PATIENT
  Age: 78 Year
  Sex: Male

DRUGS (2)
  1. ACTOS [Concomitant]
     Indication: DIABETES MELLITUS
     Route: 048
     Dates: end: 20100226
  2. JANUVIA [Suspect]
     Indication: DIABETES MELLITUS
     Route: 048
     Dates: start: 20100226, end: 20100302

REACTIONS (3)
  - BLOOD SODIUM DECREASED [None]
  - BLOOD POTASSIUM INCREASED [None]
  - HYPERGLYCAEMIA [None]
